FAERS Safety Report 4862926-4 (Version None)
Quarter: 2005Q4

REPORT INFORMATION
  Report Type: 
  Country: None (occurrence: None)
  Receive Date: 20051221
  Receipt Date: 20050610
  Transmission Date: 20060501
  Serious: Yes (Hospitalization, Other)
  Sender: FDA-Public Use
  Company Number: FR-ABBOTT-05P-056-0303201-00

PATIENT
  Age: 52 Year
  Sex: Male
  Weight: 69 kg

DRUGS (17)
  1. KALETRA [Suspect]
     Indication: HIV INFECTION
     Route: 048
     Dates: start: 20050519, end: 20050527
  2. NORVIR [Suspect]
     Indication: DRUG USE FOR UNKNOWN INDICATION
     Dates: start: 20050323, end: 20050523
  3. DIDANOSINE [Concomitant]
     Indication: HIV INFECTION
     Route: 048
     Dates: start: 20050519, end: 20050527
  4. DIDANOSINE [Concomitant]
     Dates: start: 20050616, end: 20051020
  5. DIDANOSINE [Concomitant]
     Dates: start: 20051020
  6. LAMIVUDINE [Concomitant]
     Indication: HIV INFECTION
     Route: 048
     Dates: start: 20050519, end: 20050527
  7. LAMIVUDINE [Concomitant]
     Dates: start: 20050616, end: 20051020
  8. BISOPROLOL [Concomitant]
     Indication: DRUG USE FOR UNKNOWN INDICATION
  9. KARVEA HCT [Concomitant]
     Indication: DRUG USE FOR UNKNOWN INDICATION
  10. SODIUM POLYSTYRENE SULFONATE [Concomitant]
     Indication: DRUG USE FOR UNKNOWN INDICATION
  11. OMEPRAZOLE [Concomitant]
     Indication: DRUG USE FOR UNKNOWN INDICATION
  12. STAVUDINE [Concomitant]
     Indication: DRUG USE FOR UNKNOWN INDICATION
     Dates: start: 20050323, end: 20050523
  13. SAQUINAVIR [Concomitant]
     Indication: DRUG USE FOR UNKNOWN INDICATION
     Dates: start: 20050323, end: 20050523
  14. NELFINAVIR [Concomitant]
     Indication: HIV INFECTION
     Dates: start: 20050616, end: 20051020
  15. ATAZANAVIR [Concomitant]
     Indication: DRUG USE FOR UNKNOWN INDICATION
     Dates: start: 20051020
  16. ENFUVIRTIDE [Concomitant]
     Indication: DRUG USE FOR UNKNOWN INDICATION
     Dates: start: 20051020
  17. ZIDOVUDINE [Concomitant]
     Indication: DRUG USE FOR UNKNOWN INDICATION
     Dates: start: 20051020

REACTIONS (8)
  - AGITATION [None]
  - CONJUNCTIVITIS [None]
  - CONVULSION [None]
  - KERATITIS [None]
  - RENAL FAILURE ACUTE [None]
  - STEVENS-JOHNSON SYNDROME [None]
  - TONGUE BITING [None]
  - URINARY INCONTINENCE [None]
